FAERS Safety Report 25529948 (Version 3)
Quarter: 2025Q3

REPORT INFORMATION
  Report Type: Report from Study
  Country: US (occurrence: US)
  Receive Date: 20250708
  Receipt Date: 20250925
  Transmission Date: 20251021
  Serious: Yes (Hospitalization, Other)
  Sender: TAKEDA
  Company Number: US-TAKEDA-2025TUS060237

PATIENT
  Sex: Male

DRUGS (4)
  1. MARIBAVIR [Interacting]
     Active Substance: MARIBAVIR
     Indication: Lung transplant
     Dosage: 1200 MILLIGRAM, BID
     Dates: start: 20250620
  2. MARIBAVIR [Interacting]
     Active Substance: MARIBAVIR
  3. PREDNISONE [Suspect]
     Active Substance: PREDNISONE
     Indication: Product used for unknown indication
  4. PRIMIDONE [Interacting]
     Active Substance: PRIMIDONE
     Indication: Product used for unknown indication

REACTIONS (8)
  - Atrial fibrillation [Unknown]
  - Agranulocytosis [Unknown]
  - Drug interaction [Unknown]
  - Dry mouth [Unknown]
  - Hyperhidrosis [Unknown]
  - Insomnia [Unknown]
  - White blood cell count abnormal [Unknown]
  - Taste disorder [Unknown]
